FAERS Safety Report 8780972 (Version 1)
Quarter: 2012Q4

REPORT INFORMATION
  Report Type: 
  Country: US (occurrence: US)
  Receive Date: 20120913
  Receipt Date: 20120913
  Transmission Date: 20130627
  Serious: No
  Sender: FDA-Public Use
  Company Number: US-PFIZER INC-2012222617

PATIENT

DRUGS (1)
  1. CHILDRENS ADVIL [Suspect]
     Dosage: 8 ounces (4OZ+4OZ)

REACTIONS (2)
  - Hypersensitivity [Unknown]
  - Erythema [Unknown]
